FAERS Safety Report 23919072 (Version 1)
Quarter: 2024Q2

REPORT INFORMATION
  Report Type: Spontaneous
  Country: US (occurrence: US)
  Receive Date: 20240530
  Receipt Date: 20240530
  Transmission Date: 20240716
  Serious: No
  Sender: FDA-Public Use
  Company Number: US-AMGEN-USASP2024106710

PATIENT

DRUGS (1)
  1. KANJINTI [Suspect]
     Active Substance: TRASTUZUMAB-ANNS
     Indication: Product used for unknown indication
     Dosage: UNK (420 MILLIGRAMM, LYOPHILIZED POWDER IN A MULTIPLE-DOSE VIAL, 10 VIALS)
     Route: 065

REACTIONS (2)
  - Intercepted product administration error [Unknown]
  - Product storage error [Unknown]

NARRATIVE: CASE EVENT DATE: 20240529
